FAERS Safety Report 11908349 (Version 2)
Quarter: 2016Q1

REPORT INFORMATION
  Report Type: Report from Study
  Country: US (occurrence: US)
  Receive Date: 20160111
  Receipt Date: 20160127
  Transmission Date: 20160526
  Serious: No
  Sender: FDA-Public Use
  Company Number: PHEH2016US000826

PATIENT
  Sex: Female
  Weight: 39.46 kg

DRUGS (1)
  1. GILENYA [Suspect]
     Active Substance: FINGOLIMOD HYDROCHLORIDE
     Indication: MULTIPLE SCLEROSIS
     Dosage: 0.5 MG, QD
     Route: 048
     Dates: start: 20151123

REACTIONS (3)
  - Head discomfort [Not Recovered/Not Resolved]
  - Dysarthria [Not Recovered/Not Resolved]
  - Malaise [Not Recovered/Not Resolved]
